FAERS Safety Report 24150572 (Version 2)
Quarter: 2024Q3

REPORT INFORMATION
  Report Type: Spontaneous
  Country: US (occurrence: US)
  Receive Date: 20240730
  Receipt Date: 20240805
  Transmission Date: 20241017
  Serious: Yes (Life-Threatening, Hospitalization, Disabling, Other)
  Sender: MERCK
  Company Number: US-MERCK-0611USA00645

PATIENT
  Sex: Female
  Weight: 63.503 kg

DRUGS (40)
  1. EMEND [Suspect]
     Active Substance: APREPITANT
     Indication: Prophylaxis of nausea and vomiting
     Dosage: 125 MG, ONCE
     Route: 048
     Dates: start: 20060928, end: 20060928
  2. EMEND [Suspect]
     Active Substance: APREPITANT
     Dosage: 80 MG, QD
     Route: 048
     Dates: start: 20060929, end: 20060930
  3. EMEND [Suspect]
     Active Substance: APREPITANT
     Dosage: 125 MG, ONCE
     Route: 048
     Dates: start: 20061020, end: 20061020
  4. EMEND [Suspect]
     Active Substance: APREPITANT
     Dosage: 80 MG, QD
     Route: 048
     Dates: start: 20061021, end: 20061022
  5. TAXOL [Concomitant]
     Active Substance: PACLITAXEL
     Indication: Neoplasm
  6. DECADRON [Concomitant]
     Active Substance: DEXAMETHASONE
     Dates: start: 20061020
  7. COUMADIN [Suspect]
     Active Substance: WARFARIN SODIUM
     Indication: Thrombosis
     Dosage: 4 MG, BIW
     Route: 048
     Dates: start: 20060913, end: 20061005
  8. COUMADIN [Suspect]
     Active Substance: WARFARIN SODIUM
     Dosage: 6 MG, UNK
     Route: 048
     Dates: start: 20060913, end: 20061009
  9. COUMADIN [Suspect]
     Active Substance: WARFARIN SODIUM
     Dosage: 10 MG, UNK
     Route: 048
     Dates: start: 20061010, end: 20061010
  10. COUMADIN [Suspect]
     Active Substance: WARFARIN SODIUM
     Dosage: 10 MG, UNK
     Route: 048
     Dates: start: 20061012, end: 20061013
  11. COUMADIN [Suspect]
     Active Substance: WARFARIN SODIUM
     Dosage: 6 MG, UNK
     Route: 048
     Dates: start: 20061014, end: 20061015
  12. COUMADIN [Suspect]
     Active Substance: WARFARIN SODIUM
     Dosage: 4 MG, UNK
     Route: 048
     Dates: start: 20061016, end: 20061016
  13. COUMADIN [Suspect]
     Active Substance: WARFARIN SODIUM
     Dosage: 6 MG, UNK
     Route: 048
     Dates: start: 20061017, end: 20061017
  14. COUMADIN [Suspect]
     Active Substance: WARFARIN SODIUM
     Dosage: 8 MG, UNK
     Route: 048
     Dates: start: 20061018, end: 20061022
  15. COUMADIN [Suspect]
     Active Substance: WARFARIN SODIUM
     Dosage: 4 MG, UNK
     Route: 048
     Dates: start: 20061023, end: 20061023
  16. COUMADIN [Suspect]
     Active Substance: WARFARIN SODIUM
     Dosage: 6 MG, UNK
     Route: 048
     Dates: start: 20061024, end: 20061024
  17. COUMADIN [Suspect]
     Active Substance: WARFARIN SODIUM
     Dosage: 4 MG, UNK
     Route: 048
     Dates: start: 20061025, end: 20061025
  18. COUMADIN [Suspect]
     Active Substance: WARFARIN SODIUM
     Dosage: 6 MG, UNK
     Route: 048
     Dates: start: 20061026, end: 20061026
  19. COUMADIN [Suspect]
     Active Substance: WARFARIN SODIUM
     Dosage: 8 MG, UNK
     Route: 048
     Dates: start: 20061027, end: 20061029
  20. COUMADIN [Suspect]
     Active Substance: WARFARIN SODIUM
     Dosage: 10 MG, UNK
     Route: 048
     Dates: start: 20061030, end: 20061105
  21. LIPITOR [Concomitant]
     Active Substance: ATORVASTATIN CALCIUM
  22. SYNTHROID [Concomitant]
     Active Substance: LEVOTHYROXINE SODIUM
  23. OMEGA-3-ACID ETHYL ESTERS [Concomitant]
     Active Substance: OMEGA-3-ACID ETHYL ESTERS
  24. METFORMIN HYDROCHLORIDE [Concomitant]
     Active Substance: METFORMIN HYDROCHLORIDE
  25. MIRTAZAPINE [Concomitant]
     Active Substance: MIRTAZAPINE
  26. AMBIEN [Concomitant]
     Active Substance: ZOLPIDEM TARTRATE
     Dosage: UNK UNK, QOW
     Dates: start: 200608
  27. DOXORUBICIN [Concomitant]
     Active Substance: DOXORUBICIN
     Dosage: UNK UNK, QOW
  28. CYCLOPHOSPHAMIDE [Concomitant]
     Active Substance: CYCLOPHOSPHAMIDE
     Dosage: UNK UNK, QOW
  29. NEULASTA [Concomitant]
     Active Substance: PEGFILGRASTIM
     Dosage: 6 MG, UNK
     Route: 058
  30. LOVENOX [Concomitant]
     Active Substance: ENOXAPARIN SODIUM
     Dosage: 1 MG/KG, BID
     Dates: start: 20060913
  31. LEVOXYL [Concomitant]
     Active Substance: LEVOTHYROXINE SODIUM
  32. PROTONIX [Concomitant]
     Active Substance: PANTOPRAZOLE SODIUM
  33. COMPAZINE [Concomitant]
     Active Substance: PROCHLORPERAZINE MALEATE
  34. REMERON [Concomitant]
     Active Substance: MIRTAZAPINE
  35. GLUCOPHAGE [Concomitant]
     Active Substance: METFORMIN HYDROCHLORIDE
  36. PERCOCET [Concomitant]
     Active Substance: ACETAMINOPHEN\OXYCODONE HYDROCHLORIDE
  37. CALCIUM [Concomitant]
     Active Substance: CALCIUM
  38. VITAMINS [Concomitant]
     Active Substance: VITAMINS
  39. ALBUTEROL [Concomitant]
     Active Substance: ALBUTEROL
  40. FLOVENT [Concomitant]
     Active Substance: FLUTICASONE PROPIONATE

REACTIONS (6)
  - International normalised ratio decreased [Recovered/Resolved]
  - International normalised ratio decreased [Recovered/Resolved]
  - Device related infection [Recovering/Resolving]
  - Tachycardia [Recovering/Resolving]
  - International normalised ratio increased [Recovered/Resolved]
  - Drug interaction [Recovered/Resolved]

NARRATIVE: CASE EVENT DATE: 20060928
